FAERS Safety Report 4401199-3 (Version None)
Quarter: 2004Q3

REPORT INFORMATION
  Report Type: 
  Country: None (occurrence: None)
  Receive Date: 20040714
  Receipt Date: 20040628
  Transmission Date: 20050211
  Serious: Yes (Life-Threatening, Hospitalization, Congenital Anomaly)
  Sender: FDA-Public Use
  Company Number: US_0406103899

PATIENT
  Sex: Female
  Weight: 5 kg

DRUGS (6)
  1. HUMALOG [Suspect]
     Dates: start: 20030101, end: 20040201
  2. HUMULIN-HUMAN INSULIN(RDNA): 30% REGULAR, 70% NPH(H [Suspect]
     Indication: DIABETES MELLITUS
     Dosage: 90 U DAY
     Dates: start: 20040201
  3. AMARYL (GLIMEPIRIDE0 [Concomitant]
  4. GLUCOPHAGE [Concomitant]
  5. ALTACE [Concomitant]
  6. NORVASC [Concomitant]

REACTIONS (6)
  - ADENOIDAL HYPERTROPHY [None]
  - DYSPNOEA [None]
  - LARGE FOR DATES BABY [None]
  - PREMATURE BABY [None]
  - STRESS SYMPTOMS [None]
  - UPPER LIMB FRACTURE [None]
